FAERS Safety Report 8742303 (Version 6)
Quarter: 2013Q2

REPORT INFORMATION
  Report Type: Report from Study
  Country: CA (occurrence: CA)
  Receive Date: 20120824
  Receipt Date: 20130628
  Transmission Date: 20140414
  Serious: Yes (Other)
  Sender: FDA-Public Use
  Company Number: CA-CELGENEUS-028-C5013-12040332

PATIENT
  Age: 62 Year
  Sex: Male
  Weight: 76.8 kg

DRUGS (29)
  1. CC-5013 [Suspect]
     Indication: CHRONIC LYMPHOCYTIC LEUKAEMIA
     Dosage: 10 MILLIGRAM
     Route: 048
     Dates: start: 20100201, end: 20100228
  2. CC-5013 [Suspect]
     Dosage: 15 MILLIGRAM
     Route: 048
     Dates: start: 20100301, end: 20100328
  3. CC-5013 [Suspect]
     Dosage: 20 MILLIGRAM
     Route: 048
     Dates: start: 20100329, end: 20100425
  4. CC-5013 [Suspect]
     Dosage: 25 MILLIGRAM
     Route: 048
     Dates: start: 20100426, end: 20101205
  5. CC-5013 [Suspect]
     Dosage: 25 MILLIGRAM
     Route: 048
     Dates: start: 20101207, end: 20110228
  6. CC-5013 [Suspect]
     Dosage: 25 MILLIGRAM
     Route: 048
     Dates: start: 20110314, end: 20110703
  7. CC-5013 [Suspect]
     Dosage: 25 MILLIGRAM
     Route: 048
     Dates: start: 20110706, end: 20110802
  8. CC-5013 [Suspect]
     Dosage: 25 MILLIGRAM
     Route: 048
     Dates: start: 20110907, end: 20120124
  9. CC-5013 [Suspect]
     Dosage: 25 MILLIGRAM
     Route: 048
     Dates: start: 20120125, end: 20120417
  10. CC-5013 [Suspect]
     Dosage: 25 MILLIGRAM
     Route: 048
     Dates: start: 20120425
  11. CC-5013 [Suspect]
     Dosage: 25 MILLIGRAM
     Route: 048
     Dates: start: 20121228, end: 20130123
  12. CC-5013 [Suspect]
     Dosage: 25 MILLIGRAM
     Route: 048
     Dates: start: 20130124
  13. G-CSF [Concomitant]
     Indication: COLONY STIMULATING FACTOR THERAPY
     Dosage: 20 MILLIGRAM
     Route: 048
     Dates: start: 20111130
  14. G-CSF [Concomitant]
     Indication: NEUTROPENIA
     Dosage: 20 MILLIGRAM
     Route: 058
     Dates: start: 20120125
  15. G-CSF [Concomitant]
     Dosage: 300 MICROGRAM
     Route: 058
     Dates: start: 20130117, end: 20130119
  16. G-CSF [Concomitant]
     Dosage: 300 MICROGRAM
     Route: 058
     Dates: start: 20130121
  17. ASA [Concomitant]
     Indication: THROMBOSIS PROPHYLAXIS
     Dosage: 81 MILLIGRAM
     Route: 048
     Dates: start: 20120425
  18. ASA [Concomitant]
     Dosage: 81 MILLIGRAM
     Route: 048
     Dates: start: 20121031
  19. RABEPRAZOLE [Concomitant]
     Indication: DYSPEPSIA
     Dosage: 20 MILLIGRAM
     Route: 048
     Dates: start: 20111130
  20. TOBREX [Concomitant]
     Indication: INFECTION PROPHYLAXIS
     Dosage: .9 MILLIGRAM
     Route: 061
     Dates: start: 20120409, end: 20120613
  21. TOBREX [Concomitant]
     Dosage: .9 MILLIGRAM
     Route: 061
     Dates: start: 20121029, end: 201304
  22. TOBREX [Concomitant]
     Route: 061
     Dates: start: 20130301, end: 201304
  23. TYLENOL [Concomitant]
     Indication: PAIN
     Route: 048
     Dates: start: 201210
  24. LEVOFLOXACIN [Concomitant]
     Indication: NASAL INFLAMMATION
     Dosage: 500 MILLIGRAM
     Route: 048
     Dates: start: 20130104, end: 20130205
  25. IMODIUM [Concomitant]
     Indication: DIARRHOEA
     Route: 048
     Dates: start: 20130114, end: 20130116
  26. LACRILUBE [Concomitant]
     Indication: UNEVALUABLE EVENT
     Dosage: 1-2DROPS
     Route: 065
     Dates: start: 20130219
  27. GARAMYCIN [Concomitant]
     Indication: PROPHYLAXIS
     Route: 065
     Dates: start: 20130220, end: 20130220
  28. EFUDEX [Concomitant]
     Indication: PSORIASIS
     Route: 061
     Dates: start: 20130404, end: 20130410
  29. CALMAL [Concomitant]
     Indication: MUSCLE SPASMS
     Route: 048
     Dates: start: 20130416

REACTIONS (2)
  - Keratoacanthoma [Recovered/Resolved]
  - Squamous cell carcinoma of skin [Recovered/Resolved]
